FAERS Safety Report 15011990 (Version 2)
Quarter: 2018Q3

REPORT INFORMATION
  Report Type: Spontaneous
  Country: US (occurrence: US)
  Receive Date: 20180614
  Receipt Date: 20180717
  Transmission Date: 20181010
  Serious: No
  Sender: FDA-Public Use
  Company Number: US-JNJFOC-20180525556

PATIENT
  Age: 31 Year
  Sex: Female
  Weight: 58.06 kg

DRUGS (3)
  1. FINASTERIDE. [Concomitant]
     Active Substance: FINASTERIDE
     Indication: HAIR GROWTH ABNORMAL
     Route: 065
  2. WOMENS ROGAINE UNSCENTED [Suspect]
     Active Substance: MINOXIDIL
     Indication: ALOPECIA
     Dosage: ONE CAPFUL
     Route: 061
     Dates: start: 201802
  3. WOMENS ROGAINE UNSCENTED [Suspect]
     Active Substance: MINOXIDIL
     Route: 061

REACTIONS (5)
  - Product physical issue [Unknown]
  - Suspected product tampering [Unknown]
  - Overdose [Unknown]
  - Drug effect decreased [Unknown]
  - Medication residue present [Unknown]

NARRATIVE: CASE EVENT DATE: 201802
